FAERS Safety Report 16289947 (Version 1)
Quarter: 2019Q2

REPORT INFORMATION
  Report Type: Spontaneous
  Country: US (occurrence: US)
  Receive Date: 20190509
  Receipt Date: 20190509
  Transmission Date: 20190711
  Serious: No
  Sender: FDA-Public Use
  Company Number: US-BEH-2019102157

PATIENT
  Sex: Female

DRUGS (3)
  1. HIZENTRA [Suspect]
     Active Substance: HUMAN IMMUNOGLOBULIN G
     Indication: HYPOGAMMAGLOBULINAEMIA
     Dosage: 20 G, QOW
     Route: 058
     Dates: start: 20180831
  2. METAXALONE. [Concomitant]
     Active Substance: METAXALONE
     Indication: NECK PAIN
  3. NAPROXEN. [Concomitant]
     Active Substance: NAPROXEN
     Indication: NECK PAIN

REACTIONS (1)
  - Neck pain [Unknown]
